FAERS Safety Report 15798682 (Version 1)
Quarter: 2019Q1

REPORT INFORMATION
  Report Type: Spontaneous
  Country: US (occurrence: US)
  Receive Date: 20190108
  Receipt Date: 20190108
  Transmission Date: 20190417
  Serious: No
  Sender: FDA-Public Use
  Company Number: US-SA-2019SA003704

PATIENT
  Age: 84 Year
  Sex: Female

DRUGS (1)
  1. ALLEGRA D-12 HOUR [Suspect]
     Active Substance: FEXOFENADINE HYDROCHLORIDE\PSEUDOEPHEDRINE HYDROCHLORIDE
     Indication: EAR INFECTION
     Dosage: 60/120 MG
     Dates: start: 20181231, end: 20190101

REACTIONS (2)
  - Hallucination [Unknown]
  - Insomnia [Unknown]

NARRATIVE: CASE EVENT DATE: 20181231
